FAERS Safety Report 5910760-6 (Version None)
Quarter: 2008Q4

REPORT INFORMATION
  Report Type: 
  Country: None (occurrence: None)
  Receive Date: 20081007
  Receipt Date: 20080417
  Transmission Date: 20090506
  Serious: No
  Sender: FDA-Public Use
  Company Number: US-ASTRAZENECA-2008UW07904

PATIENT
  Age: 71 Year
  Sex: Female
  Weight: 66.7 kg

DRUGS (4)
  1. ARIMIDEX [Suspect]
     Indication: BREAST CANCER
     Route: 048
  2. PREVACID [Concomitant]
  3. CLARITIN [Concomitant]
  4. VESICARE [Concomitant]

REACTIONS (2)
  - ABDOMINAL DISCOMFORT [None]
  - OEDEMA PERIPHERAL [None]
